FAERS Safety Report 14908676 (Version 5)
Quarter: 2019Q1

REPORT INFORMATION
  Report Type: Spontaneous
  Country: DE (occurrence: DE)
  Receive Date: 20180517
  Receipt Date: 20190122
  Transmission Date: 20190417
  Serious: Yes (Congenital Anomaly, Other)
  Sender: FDA-Public Use
  Company Number: DE-MYLANLABS-2018M1031856

PATIENT
  Sex: Male
  Weight: 3.05 kg

DRUGS (4)
  1. AMPICILLIN [Concomitant]
     Active Substance: AMPICILLIN
     Indication: PRODUCT USED FOR UNKNOWN INDICATION
     Dosage: UNK
     Route: 064
  2. SULBACTAM [Concomitant]
     Active Substance: SULBACTAM
     Indication: PRODUCT USED FOR UNKNOWN INDICATION
     Dosage: UNK
     Route: 064
  3. DICLOFENAC [Suspect]
     Active Substance: DICLOFENAC
     Indication: INJURY
     Dosage: UNK
     Route: 064
  4. PSEUDOEPHEDRINE. [Concomitant]
     Active Substance: PSEUDOEPHEDRINE HYDROCHLORIDE
     Indication: PRODUCT USED FOR UNKNOWN INDICATION
     Dosage: UNK
     Route: 064

REACTIONS (4)
  - Kidney duplex [Unknown]
  - Cardiac septal defect [Unknown]
  - Cryopyrin associated periodic syndrome [Not Recovered/Not Resolved]
  - Foetal exposure during pregnancy [Recovered/Resolved]
